FAERS Safety Report 9069005 (Version 1)
Quarter: 2013Q1

REPORT INFORMATION
  Report Type: Report from Study
  Country: US (occurrence: US)
  Receive Date: 20130215
  Receipt Date: 20130215
  Transmission Date: 20140127
  Serious: Yes (Hospitalization)
  Sender: FDA-Public Use
  Company Number: US-009507513-1302USA003861

PATIENT
  Age: 8 None
  Sex: Male
  Weight: 29.6 kg

DRUGS (9)
  1. TEMOZOLOMIDE [Suspect]
     Indication: NEUROBLASTOMA
     Dosage: 110 MG, QD
     Route: 048
     Dates: start: 20121203, end: 20121207
  2. TEMOZOLOMIDE [Suspect]
     Dosage: UNK
  3. MLN8237 [Suspect]
     Indication: NEUROBLASTOMA
     Dosage: 50 MG, QD
     Route: 048
     Dates: start: 20121203, end: 20121209
  4. IRINOTECAN HYDROCHLORIDE [Suspect]
     Indication: NEUROBLASTOMA
     Dosage: 58 MG, QD
     Route: 042
     Dates: start: 20121203, end: 20121207
  5. NEULASTA [Concomitant]
     Dosage: UNK
     Dates: start: 20121210, end: 20121210
  6. ONDANSETRON [Concomitant]
     Dosage: UNK
     Dates: start: 20121203, end: 20121207
  7. CEFIXIME [Concomitant]
     Dosage: UNK
     Dates: start: 20121201
  8. ATROPINE [Concomitant]
     Dosage: UNK
     Dates: start: 20121203, end: 20121207
  9. LOPERAMIDE HYDROCHLORIDE [Concomitant]
     Dosage: UNK
     Dates: start: 20121209, end: 20121216

REACTIONS (4)
  - Platelet count decreased [Not Recovered/Not Resolved]
  - Device related infection [Not Recovered/Not Resolved]
  - Neutropenia [Not Recovered/Not Resolved]
  - White blood cell count decreased [Not Recovered/Not Resolved]
